FAERS Safety Report 20209305 (Version 1)
Quarter: 2021Q4

REPORT INFORMATION
  Report Type: Spontaneous
  Country: None (occurrence: GB)
  Receive Date: 20211220
  Receipt Date: 20211220
  Transmission Date: 20220304
  Serious: Yes (Other)
  Sender: FDA-Public Use
  Company Number: GB-Ascend Therapeutics US, LLC-2123214

PATIENT
  Age: 41 Year
  Sex: Female
  Weight: 71 kg

DRUGS (5)
  1. ESTROGEL [Suspect]
     Active Substance: ESTRADIOL
     Indication: Premature menopause
     Route: 061
  2. ESTROGEL [Suspect]
     Active Substance: ESTRADIOL
  3. ESTRADIOL [Suspect]
     Active Substance: ESTRADIOL
     Route: 061
  4. ESTRADIOL [Suspect]
     Active Substance: ESTRADIOL
     Route: 061
  5. FLUOXETIN(FLUOXETINE HYDROCHLORIDE) [Concomitant]
     Route: 065

REACTIONS (2)
  - Menopausal symptoms [Unknown]
  - Therapeutic product effect decreased [None]

NARRATIVE: CASE EVENT DATE: 20170801
